FAERS Safety Report 6902341-2 (Version None)
Quarter: 2010Q3

REPORT INFORMATION
  Report Type: 
  Country: None (occurrence: None)
  Receive Date: 20100803
  Receipt Date: 20080510
  Transmission Date: 20110219
  Serious: No
  Sender: FDA-Public Use
  Company Number: US-PFIZER INC-2008041916

PATIENT
  Sex: Female
  Weight: 53.1 kg

DRUGS (7)
  1. LYRICA [Suspect]
     Indication: FIBROMYALGIA
     Dates: start: 20080509
  2. SYNTHROID [Concomitant]
  3. DIOVANE [Concomitant]
  4. NORVASC [Concomitant]
  5. FLOVENT [Concomitant]
  6. ACETYLSALICYLIC ACID SRT [Concomitant]
  7. VITAMIN TAB [Concomitant]

REACTIONS (3)
  - ABDOMINAL PAIN UPPER [None]
  - DIZZINESS [None]
  - INTESTINAL FUNCTIONAL DISORDER [None]
